FAERS Safety Report 8577660-7 (Version None)
Quarter: 2012Q3

REPORT INFORMATION
  Report Type: 
  Country: None (occurrence: None)
  Receive Date: 20120807
  Receipt Date: 20120726
  Transmission Date: 20120928
  Serious: No
  Sender: FDA-Public Use
  Company Number: CO-AMGEN-COLSP2011065612

PATIENT
  Age: 1 Day
  Sex: Male
  Weight: 3.9 kg

DRUGS (4)
  1. TETANUS VACCINE [Concomitant]
     Dosage: UNK
     Route: 064
     Dates: start: 20120401
  2. MAGNESIUM [Concomitant]
     Indication: HOMEOPATHY
     Dosage: UNK
     Route: 064
  3. ENBREL [Suspect]
     Dosage: 50 MG, WEEKLY
     Route: 064
     Dates: start: 20101101, end: 20110729
  4. ENBREL [Suspect]
     Dosage: 50 MG, MONTHLY
     Route: 064
     Dates: start: 20110601, end: 20110729

REACTIONS (1)
  - MATERNAL EXPOSURE TIMING UNSPECIFIED [None]
